FAERS Safety Report 4955682-2 (Version None)
Quarter: 2006Q1

REPORT INFORMATION
  Report Type: 
  Country: None (occurrence: None)
  Receive Date: 20060328
  Receipt Date: 20060110
  Transmission Date: 20060701
  Serious: Yes (Death, Hospitalization, Disabling)
  Sender: FDA-Public Use
  Company Number: US-MERCK-0601USA01297

PATIENT
  Age: 85 Year
  Sex: Female

DRUGS (3)
  1. ATENOLOL [Concomitant]
     Route: 065
  2. NORVASC [Concomitant]
     Route: 065
  3. VIOXX [Suspect]
     Indication: ARTHRITIS
     Route: 048
     Dates: start: 20001011, end: 20040320

REACTIONS (5)
  - ACCIDENT [None]
  - CEREBROVASCULAR ACCIDENT [None]
  - EMOTIONAL DISORDER [None]
  - INJURY [None]
  - PNEUMONIA [None]
